FAERS Safety Report 8388397-1 (Version None)
Quarter: 2012Q2

REPORT INFORMATION
  Report Type: 
  Country: None (occurrence: None)
  Receive Date: 20120525
  Receipt Date: 20120514
  Transmission Date: 20120825
  Serious: Yes (Hospitalization, Other)
  Sender: FDA-Public Use
  Company Number: FR-ELI_LILLY_AND_COMPANY-FR201205004456

PATIENT
  Sex: Female

DRUGS (6)
  1. ABILIFY [Concomitant]
     Dosage: 10 MG, QD
     Route: 048
  2. PRAZEPAM [Concomitant]
     Dosage: 4 DF, QD
     Route: 048
  3. TERCIAN [Concomitant]
  4. CRESTOR [Concomitant]
     Route: 048
  5. NOCTAMIDE [Concomitant]
     Dosage: 1 DF, QD
     Route: 048
  6. CYMBALTA [Suspect]
     Dosage: 60 MG, QD
     Route: 048

REACTIONS (3)
  - CHOLECYSTECTOMY [None]
  - BILIARY SPHINCTEROTOMY [None]
  - STRESS CARDIOMYOPATHY [None]
